FAERS Safety Report 10022316 (Version 1)
Quarter: 2014Q1

REPORT INFORMATION
  Report Type: Spontaneous
  Country: US (occurrence: None)
  Receive Date: 20140318
  Receipt Date: 20140318
  Transmission Date: 20141002
  Serious: Yes (Other)
  Sender: FDA-Public Use
  Company Number: None

PATIENT
  Age: 66 Year
  Sex: Male
  Weight: 86.18 kg

DRUGS (2)
  1. LYRICA [Suspect]
     Indication: SURGERY
     Dosage: 75MG 2 PILLS - 3X A DAY
     Dates: start: 20131115
  2. LYRICA [Suspect]
     Dosage: 75MG 2 PILLS - 3X A DAY
     Dates: start: 20131115

REACTIONS (2)
  - Rash [None]
  - Pruritus [None]
